FAERS Safety Report 6656015-6 (Version None)
Quarter: 2010Q1

REPORT INFORMATION
  Report Type: 
  Country: None (occurrence: None)
  Receive Date: 20100329
  Receipt Date: 20100317
  Transmission Date: 20100710
  Serious: No
  Sender: FDA-Public Use
  Company Number: JP-JNJFOC-20100305586

PATIENT

DRUGS (1)
  1. DUROTEP MT PATCH [Suspect]
     Indication: PROCEDURAL PAIN
     Route: 062

REACTIONS (2)
  - DRUG ADMINISTRATION ERROR [None]
  - OFF LABEL USE [None]
